FAERS Safety Report 4560892-2 (Version None)
Quarter: 2005Q1

REPORT INFORMATION
  Report Type: 
  Country: None (occurrence: None)
  Receive Date: 20050126
  Receipt Date: 20050112
  Transmission Date: 20050727
  Serious: Yes (Life-Threatening, Congenital Anomaly)
  Sender: FDA-Public Use
  Company Number: FR-JNJFOC-20041206275

PATIENT
  Sex: Male

DRUGS (16)
  1. CONTRAMAL [Suspect]
     Indication: DRUG USE FOR UNKNOWN INDICATION
     Route: 064
  2. LEVOTHYROX [Suspect]
     Indication: DRUG USE FOR UNKNOWN INDICATION
     Route: 064
  3. IODINE [Suspect]
     Indication: DRUG USE FOR UNKNOWN INDICATION
     Route: 064
  4. MAGNESIUM PIDOLATE [Suspect]
     Indication: DRUG USE FOR UNKNOWN INDICATION
     Route: 064
  5. FERO GRAD LP VITAMINE C [Suspect]
     Route: 064
  6. FERO GRAD LP VITAMINE C [Suspect]
     Indication: DRUG USE FOR UNKNOWN INDICATION
     Route: 064
  7. ASPEGIC NOURISSON [Suspect]
     Indication: DRUG USE FOR UNKNOWN INDICATION
     Route: 064
  8. MULTIVITAMIN [Concomitant]
     Route: 064
  9. UVEDOSE [Concomitant]
     Dosage: 1 DOSE OF ALMOST 100,000IU
     Route: 064
  10. GAVISCON [Concomitant]
     Route: 064
  11. GAVISCON [Concomitant]
     Route: 064
  12. CYCLO [Concomitant]
     Route: 064
  13. CYCLO [Concomitant]
     Route: 064
  14. CYCLO [Concomitant]
     Route: 064
  15. SPASFON [Concomitant]
     Route: 064
  16. SPASFON [Concomitant]
     Route: 064

REACTIONS (2)
  - FOETAL ARRHYTHMIA [None]
  - VENTRICULAR SEPTAL DEFECT [None]
